FAERS Safety Report 7502508-9 (Version None)
Quarter: 2011Q2

REPORT INFORMATION
  Report Type: 
  Country: None (occurrence: None)
  Receive Date: 20110525
  Receipt Date: 20110516
  Transmission Date: 20111010
  Serious: Yes (Hospitalization)
  Sender: FDA-Public Use
  Company Number: DE-JNJFOC-20110506844

PATIENT
  Sex: Male

DRUGS (4)
  1. TILIDIN [Concomitant]
     Indication: PRODUCT USED FOR UNKNOWN INDICATION
     Route: 065
  2. UNKNOWN MEDICATION [Concomitant]
     Route: 065
  3. NEURONTIN [Concomitant]
     Indication: PRODUCT USED FOR UNKNOWN INDICATION
     Route: 065
  4. TAPENTADOL [Suspect]
     Indication: PRODUCT USED FOR UNKNOWN INDICATION
     Dosage: 1 DF, 2/DAY
     Route: 048
     Dates: start: 20110118, end: 20110426

REACTIONS (22)
  - SWELLING FACE [None]
  - OROPHARYNGEAL PAIN [None]
  - HYPERHIDROSIS [None]
  - ASPHYXIA [None]
  - GENERAL PHYSICAL HEALTH DETERIORATION [None]
  - LIP SWELLING [None]
  - DYSPHAGIA [None]
  - SALIVARY HYPERSECRETION [None]
  - VISUAL IMPAIRMENT [None]
  - DECREASED APPETITE [None]
  - HALLUCINATION [None]
  - MUSCLE ATROPHY [None]
  - WEIGHT DECREASED [None]
  - DISTURBANCE IN ATTENTION [None]
  - ANXIETY [None]
  - TREMOR [None]
  - ARTHRALGIA [None]
  - SPEECH DISORDER [None]
  - RESTLESSNESS [None]
  - CHILLS [None]
  - SWOLLEN TONGUE [None]
  - DYSPNOEA [None]
